FAERS Safety Report 7311144-9 (Version None)
Quarter: 2011Q1

REPORT INFORMATION
  Report Type: 
  Country: None (occurrence: None)
  Receive Date: 20110224
  Receipt Date: 20110209
  Transmission Date: 20110831
  Serious: Yes (Other)
  Sender: FDA-Public Use
  Company Number: GR-ROCHE-753183

PATIENT
  Age: 30 Year
  Sex: Female

DRUGS (1)
  1. MYCOPHENOLATE MOFETIL (NON-ROCHE) [Suspect]
     Route: 065

REACTIONS (4)
  - APLASIA PURE RED CELL [None]
  - POSTERIOR REVERSIBLE ENCEPHALOPATHY SYNDROME [None]
  - GLOMERULONEPHRITIS [None]
  - VASCULITIS [None]
